FAERS Safety Report 25324364 (Version 2)
Quarter: 2025Q2

REPORT INFORMATION
  Report Type: Spontaneous
  Country: BE (occurrence: BE)
  Receive Date: 20250516
  Receipt Date: 20250605
  Transmission Date: 20250717
  Serious: Yes (Other)
  Sender: SANOFI AVENTIS
  Company Number: BE-SA-2023SA322655

PATIENT
  Age: 54 Year
  Sex: Female

DRUGS (4)
  1. MABCAMPATH [Suspect]
     Active Substance: ALEMTUZUMAB
     Indication: T-cell prolymphocytic leukaemia
     Dates: start: 20230107
  2. MABCAMPATH [Suspect]
     Active Substance: ALEMTUZUMAB
     Dates: start: 202311, end: 202401
  3. RUXOLITINIB [Concomitant]
     Active Substance: RUXOLITINIB
     Indication: Premedication
  4. VENETOCLAX [Concomitant]
     Active Substance: VENETOCLAX
     Indication: Premedication

REACTIONS (2)
  - Leukaemia recurrent [Unknown]
  - Off label use [Unknown]

NARRATIVE: CASE EVENT DATE: 20230107
